FAERS Safety Report 7249835-0 (Version None)
Quarter: 2011Q1

REPORT INFORMATION
  Report Type: 
  Country: None (occurrence: None)
  Receive Date: 20110128
  Receipt Date: 20100527
  Transmission Date: 20110831
  Serious: No
  Sender: FDA-Public Use
  Company Number: A0861719A

PATIENT
  Sex: Male

DRUGS (2)
  1. WELLBUTRIN [Suspect]
     Indication: DEPRESSION
     Route: 048
     Dates: start: 20100201
  2. ALCOHOL [Suspect]
     Route: 048

REACTIONS (2)
  - ALCOHOL USE [None]
  - ABNORMAL BEHAVIOUR [None]
